FAERS Safety Report 5574559-5 (Version None)
Quarter: 2007Q4

REPORT INFORMATION
  Report Type: 
  Country: None (occurrence: None)
  Receive Date: 20071227
  Receipt Date: 20071225
  Transmission Date: 20080405
  Serious: Yes (Hospitalization)
  Sender: FDA-Public Use
  Company Number: JP-SP-2007-03454

PATIENT
  Age: 83 Year
  Sex: Male

DRUGS (3)
  1. IMMUCYST [Suspect]
     Indication: CARCINOMA IN SITU OF BLADDER
     Route: 043
     Dates: start: 20070723, end: 20070919
  2. DICLOFENAC SODIUM [Concomitant]
  3. SPARFLOXACIN [Concomitant]

REACTIONS (1)
  - RENAL FAILURE ACUTE [None]
